FAERS Safety Report 11939934 (Version 1)
Quarter: 2016Q1

REPORT INFORMATION
  Report Type: Spontaneous
  Country: GB (occurrence: GB)
  Receive Date: 20160122
  Receipt Date: 20160122
  Transmission Date: 20160526
  Serious: Yes (Other)
  Sender: FDA-Public Use
  Company Number: GB-TEVA-625367ACC

PATIENT
  Age: 34 Year
  Sex: Female

DRUGS (1)
  1. CISPLATIN. [Suspect]
     Active Substance: CISPLATIN
     Indication: CERVIX CARCINOMA
     Dates: end: 201411

REACTIONS (4)
  - Functional gastrointestinal disorder [Unknown]
  - Radiation associated haemorrhage [Unknown]
  - Activities of daily living impaired [Unknown]
  - Malaise [Unknown]
